FAERS Safety Report 15886338 (Version 1)
Quarter: 2019Q1

REPORT INFORMATION
  Report Type: Report from Study
  Country: US (occurrence: US)
  Receive Date: 20190129
  Receipt Date: 20190129
  Transmission Date: 20190417
  Serious: Yes (Other)
  Sender: FDA-Public Use
  Company Number: US-GLAXOSMITHKLINE-US2018228811

PATIENT
  Sex: Female

DRUGS (1)
  1. MEPOLIZUMAB [Suspect]
     Active Substance: MEPOLIZUMAB
     Indication: PRODUCT USED FOR UNKNOWN INDICATION
     Dosage: UNK
     Route: 042

REACTIONS (26)
  - Sinus disorder [Unknown]
  - Amnesia [Unknown]
  - Pallor [Recovered/Resolved]
  - Disturbance in attention [Unknown]
  - Infection [Unknown]
  - Weight decreased [Unknown]
  - Headache [Not Recovered/Not Resolved]
  - Dark circles under eyes [Recovered/Resolved]
  - Erythema [Unknown]
  - Arthralgia [Recovered/Resolved]
  - Dry skin [Not Recovered/Not Resolved]
  - Dizziness [Recovered/Resolved]
  - Nasopharyngitis [Not Recovered/Not Resolved]
  - Decreased appetite [Recovered/Resolved]
  - Ill-defined disorder [Recovered/Resolved]
  - Sinus operation [Unknown]
  - Post procedural inflammation [Unknown]
  - Fatigue [Recovered/Resolved]
  - Flushing [Unknown]
  - Lymphadenopathy [Unknown]
  - Injection site irritation [Recovered/Resolved]
  - Asthenia [Recovered/Resolved]
  - Feeling hot [Unknown]
  - Head discomfort [Not Recovered/Not Resolved]
  - Condition aggravated [Unknown]
  - Computerised tomogram abnormal [Unknown]
